FAERS Safety Report 8274341-4 (Version None)
Quarter: 2012Q2

REPORT INFORMATION
  Report Type: 
  Country: None (occurrence: None)
  Receive Date: 20120411
  Receipt Date: 20120402
  Transmission Date: 20120825
  Serious: Yes (Hospitalization)
  Sender: FDA-Public Use
  Company Number: FR-ASTRAZENECA-2012SE15047

PATIENT
  Sex: Male
  Weight: 73 kg

DRUGS (7)
  1. ZOPLICONE [Concomitant]
     Dosage: STARTED AT LEAST IN 2004
     Route: 048
  2. SURFALEM S25 [Concomitant]
     Dosage: STARTED AT LEAST IN 2004
     Route: 048
  3. PARKINANE LP [Concomitant]
     Route: 048
     Dates: start: 20120217
  4. ALFUZOSIN HCL [Concomitant]
     Route: 048
     Dates: start: 20080101
  5. QUETIAPINE FUMARATE [Suspect]
     Indication: MANIA
     Route: 048
     Dates: start: 20120208, end: 20120218
  6. DEPAKOTE [Concomitant]
     Dosage: STARTED AT LEAST IN 2003
     Route: 048
  7. METFORMIN HCL [Concomitant]
     Dosage: 700 MG PER TABLET, 1/2 TABLET TRHEE TIMES PER DAY
     Dates: start: 20110501

REACTIONS (5)
  - ENURESIS [None]
  - HYPONATRAEMIA [None]
  - DISORIENTATION [None]
  - VOMITING [None]
  - SEDATION [None]
